FAERS Safety Report 17875862 (Version 1)
Quarter: 2020Q2

REPORT INFORMATION
  Report Type: Spontaneous
  Country: US (occurrence: US)
  Receive Date: 20200609
  Receipt Date: 20200609
  Transmission Date: 20200714
  Serious: No
  Sender: FDA-Public Use
  Company Number: None

PATIENT
  Age: 87 Year
  Sex: Female
  Weight: 74.57 kg

DRUGS (15)
  1. VISTARIL [Concomitant]
     Active Substance: HYDROXYZINE PAMOATE
  2. GABAPENTIN. [Concomitant]
     Active Substance: GABAPENTIN
  3. PROLIA [Concomitant]
     Active Substance: DENOSUMAB
  4. IRON [Concomitant]
     Active Substance: IRON
  5. LIPITOR [Concomitant]
     Active Substance: ATORVASTATIN CALCIUM
  6. NORCO [Concomitant]
     Active Substance: ACETAMINOPHEN\HYDROCODONE BITARTRATE
  7. WARFARIN [Concomitant]
     Active Substance: WARFARIN
  8. CARVEDILOL. [Concomitant]
     Active Substance: CARVEDILOL
  9. PANTOPRAZOLE [Concomitant]
     Active Substance: PANTOPRAZOLE
  10. MORPHINE [Concomitant]
     Active Substance: MORPHINE
  11. ZESTRIL [Concomitant]
     Active Substance: LISINOPRIL
  12. SPIRONOLACTONE. [Concomitant]
     Active Substance: SPIRONOLACTONE
  13. ROPINIROLE. [Concomitant]
     Active Substance: ROPINIROLE
  14. KISQALI [Suspect]
     Active Substance: RIBOCICLIB
     Indication: BREAST CANCER
     Route: 048
     Dates: start: 20200513, end: 20200609
  15. FAMOTIDINE. [Concomitant]
     Active Substance: FAMOTIDINE

REACTIONS (5)
  - Taste disorder [None]
  - Nausea [None]
  - Decreased appetite [None]
  - Weight decreased [None]
  - Dehydration [None]

NARRATIVE: CASE EVENT DATE: 20200609
